FAERS Safety Report 11783850 (Version 2)
Quarter: 2016Q1

REPORT INFORMATION
  Report Type: Report from Study
  Country: US (occurrence: US)
  Receive Date: 20151127
  Receipt Date: 20160130
  Transmission Date: 20160525
  Serious: No
  Sender: FDA-Public Use
  Company Number: PHEH2015US024850

PATIENT
  Age: 72 Year
  Sex: Male
  Weight: 57.14 kg

DRUGS (2)
  1. AFINITOR [Suspect]
     Active Substance: EVEROLIMUS
     Dosage: UNK
     Route: 048
  2. AFINITOR [Suspect]
     Active Substance: EVEROLIMUS
     Indication: RENAL CELL CARCINOMA
     Dosage: 7.5 MG, QD
     Route: 048
     Dates: start: 20150810

REACTIONS (1)
  - Oral mucosal blistering [Recovered/Resolved with Sequelae]

NARRATIVE: CASE EVENT DATE: 20151221
